FAERS Safety Report 9742927 (Version 2)
Quarter: 2014Q1

REPORT INFORMATION
  Report Type: Spontaneous
  Country: US (occurrence: US)
  Receive Date: 20131210
  Receipt Date: 20140219
  Transmission Date: 20141002
  Serious: Yes (Death)
  Sender: FDA-Public Use
  Company Number: US-PURDUE-USA-2013-0109372

PATIENT
  Age: 89 Year
  Sex: Female
  Weight: 44.44 kg

DRUGS (6)
  1. BUTRANS [Suspect]
     Indication: PAIN
     Dosage: 5 UNK, UNK
     Route: 062
     Dates: start: 20130906, end: 20130930
  2. BUTRANS [Suspect]
     Indication: COMPRESSION FRACTURE
  3. DONEPEZIL [Concomitant]
     Indication: DEMENTIA
     Dosage: 10 MG, HS
     Route: 048
     Dates: start: 20130816, end: 20130930
  4. MARINOL                            /00897601/ [Concomitant]
     Indication: DECREASED APPETITE
     Dosage: 2.5 MG, BID
     Route: 048
     Dates: start: 20130905, end: 20130930
  5. MARINOL                            /00897601/ [Concomitant]
     Indication: WEIGHT DECREASED
  6. AMLODIPINE [Concomitant]
     Indication: HYPERTENSION
     Dosage: 5 MG, DAILY
     Route: 048
     Dates: start: 20130816, end: 20130930

REACTIONS (4)
  - Renal failure acute [Fatal]
  - Failure to thrive [Fatal]
  - Respiratory arrest [Fatal]
  - Dehydration [Unknown]
